FAERS Safety Report 9506038 (Version 1)
Quarter: 2013Q1

REPORT INFORMATION
  Report Type: Spontaneous
  Country: US (occurrence: None)
  Receive Date: 20130206
  Receipt Date: 20130206
  Transmission Date: 20140127
  Serious: Yes (Other)
  Sender: FDA-Public Use
  Company Number: DAV-AE-MTX-12-46

PATIENT
  Sex: Female

DRUGS (5)
  1. METHOTREXATE [Suspect]
     Dosage: 1/4 TABLET QD. ORAL
     Route: 048
     Dates: start: 201202, end: 20120529
  2. MEDROXYPROGESTERONE [Concomitant]
  3. ESTRADIOL [Concomitant]
  4. ZOLOFT [Concomitant]
  5. AMBIEN [Concomitant]

REACTIONS (3)
  - Dizziness [None]
  - Balance disorder [None]
  - Visual impairment [None]
